FAERS Safety Report 9497847 (Version 1)
Quarter: 2013Q3

REPORT INFORMATION
  Report Type: Spontaneous
  Country: US (occurrence: US)
  Receive Date: 20130904
  Receipt Date: 20130904
  Transmission Date: 20140515
  Serious: No
  Sender: FDA-Public Use
  Company Number: US-AMGEN-USASP2013059627

PATIENT
  Age: 64 Year
  Sex: Male

DRUGS (1)
  1. ENBREL [Suspect]
     Indication: PSORIATIC ARTHROPATHY
     Dosage: 50 MG, 2 TIMES/WK
     Route: 065
     Dates: start: 20130812

REACTIONS (14)
  - Overdose [Not Recovered/Not Resolved]
  - Feeling abnormal [Not Recovered/Not Resolved]
  - Flushing [Not Recovered/Not Resolved]
  - Dizziness [Not Recovered/Not Resolved]
  - Headache [Not Recovered/Not Resolved]
  - Nausea [Not Recovered/Not Resolved]
  - Feeling hot [Not Recovered/Not Resolved]
  - Blood pressure increased [Not Recovered/Not Resolved]
  - Scar [Not Recovered/Not Resolved]
  - Laceration [Not Recovered/Not Resolved]
  - Musculoskeletal pain [Not Recovered/Not Resolved]
  - Inflammation [Not Recovered/Not Resolved]
  - Injection site reaction [Recovered/Resolved]
  - Injection site erythema [Not Recovered/Not Resolved]
